FAERS Safety Report 7120703-8 (Version None)
Quarter: 2010Q4

REPORT INFORMATION
  Report Type: 
  Country: None (occurrence: None)
  Receive Date: 20101124
  Receipt Date: 20101119
  Transmission Date: 20110411
  Serious: Yes (Other)
  Sender: FDA-Public Use
  Company Number: US-BAYER-201036754NA

PATIENT
  Age: 40 Year
  Sex: Female

DRUGS (6)
  1. MIRENA [Suspect]
     Indication: CONTRACEPTION
     Route: 015
     Dates: start: 20090505, end: 20100726
  2. CALCIUM COMPLEX [Concomitant]
     Route: 048
  3. VITAMIN C + E COMBINATION [Concomitant]
     Dosage: 500-400MG-UNIT
     Route: 048
  4. MIRALAX [Concomitant]
     Route: 048
  5. PRENATAL RX [Concomitant]
     Dosage: 60-1MG
     Route: 048
     Dates: start: 20090420
  6. ASPIRIN [Concomitant]
     Dosage: 81 MG
     Route: 048
     Dates: start: 20080205

REACTIONS (2)
  - AMENORRHOEA [None]
  - DEVICE DISLOCATION [None]
